FAERS Safety Report 16330419 (Version 1)
Quarter: 2019Q2

REPORT INFORMATION
  Report Type: Spontaneous
  Country: PH (occurrence: PH)
  Receive Date: 20190520
  Receipt Date: 20190520
  Transmission Date: 20190711
  Serious: Yes (Other)
  Sender: FDA-Public Use
  Company Number: PH-ABBVIE-19S-128-2787137-00

PATIENT
  Sex: Female

DRUGS (3)
  1. SEVOFLURANE. [Suspect]
     Active Substance: SEVOFLURANE
     Route: 055
  2. SEVOFLURANE. [Suspect]
     Active Substance: SEVOFLURANE
     Indication: PRODUCT USED FOR UNKNOWN INDICATION
     Route: 055
  3. SEVOFLURANE. [Suspect]
     Active Substance: SEVOFLURANE
     Route: 055

REACTIONS (2)
  - Drug ineffective [Recovered/Resolved]
  - Suspected counterfeit product [Unknown]
